FAERS Safety Report 6528099-7 (Version None)
Quarter: 2009Q4

REPORT INFORMATION
  Report Type: 
  Country: None (occurrence: None)
  Receive Date: 20091230
  Receipt Date: 20091223
  Transmission Date: 20100525
  Serious: Yes (Death, Other)
  Sender: FDA-Public Use
  Company Number: 2009EU004926

PATIENT
  Sex: Male

DRUGS (2)
  1. PROGRAF [Suspect]
     Indication: LIVER TRANSPLANT
  2. BASILIXIMAB (BASILIXIMAB) [Concomitant]

REACTIONS (2)
  - LYMPHOPROLIFERATIVE DISORDER [None]
  - PROCEDURAL COMPLICATION [None]
